FAERS Safety Report 13601182 (Version 1)
Quarter: 2017Q2

REPORT INFORMATION
  Report Type: Spontaneous
  Country: US (occurrence: US)
  Receive Date: 20170601
  Receipt Date: 20170601
  Transmission Date: 20170830
  Serious: Yes (Other)
  Sender: FDA-Public Use
  Company Number: None

PATIENT
  Age: 69 Year
  Sex: Female

DRUGS (1)
  1. EPCLUSA [Suspect]
     Active Substance: SOFOSBUVIR\VELPATASVIR
     Indication: CHRONIC HEPATITIS C
     Route: 048
     Dates: start: 20170519, end: 20170530

REACTIONS (5)
  - Diarrhoea [None]
  - Dehydration [None]
  - Hyperhidrosis [None]
  - Dyspnoea [None]
  - Decreased appetite [None]

NARRATIVE: CASE EVENT DATE: 20170527
